FAERS Safety Report 9352321 (Version 4)
Quarter: 2014Q1

REPORT INFORMATION
  Report Type: Spontaneous
  Country: US (occurrence: US)
  Receive Date: 20130617
  Receipt Date: 20140319
  Transmission Date: 20141002
  Serious: No
  Sender: FDA-Public Use
  Company Number: US-PFIZER INC-2013178257

PATIENT
  Age: 42 Year
  Sex: Female

DRUGS (10)
  1. ENBREL [Suspect]
     Dosage: UNK
  2. XELJANZ [Suspect]
     Indication: RHEUMATOID ARTHRITIS
     Dosage: 5 MG, TWICE A DAY
     Route: 048
     Dates: start: 20130405, end: 201306
  3. ORENCIA [Suspect]
     Dosage: UNK
  4. REMICADE [Suspect]
     Dosage: UNK
  5. ETODOLAC [Concomitant]
     Indication: PAIN
     Dosage: 400 MG, ONCE A DAY
  6. ETODOLAC [Concomitant]
     Indication: RHEUMATOID ARTHRITIS
  7. LEXAPRO [Concomitant]
     Indication: DEPRESSION
     Dosage: 20 MG, UNK
  8. PREDNISONE [Concomitant]
     Indication: PAIN
     Dosage: 5 MG, BID
  9. PREDNISONE [Concomitant]
     Indication: RHEUMATOID ARTHRITIS
  10. NORCO [Concomitant]
     Indication: PAIN
     Dosage: 10/325 MG (HYDROCODONE BITARTRATE: 10MG, PARACETAMOL: 325MG)

REACTIONS (3)
  - Psoriasis [Recovered/Resolved]
  - Drug ineffective [Unknown]
  - Blood glucose increased [Unknown]
